FAERS Safety Report 20373140 (Version 1)
Quarter: 2022Q1

REPORT INFORMATION
  Report Type: Spontaneous
  Country: CN (occurrence: CN)
  Receive Date: 20220125
  Receipt Date: 20220125
  Transmission Date: 20220424
  Serious: Yes (Hospitalization, Other)
  Sender: FDA-Public Use
  Company Number: CN-NOVOPROD-884622

PATIENT
  Sex: Female

DRUGS (1)
  1. LEVEMIR [Suspect]
     Active Substance: INSULIN DETEMIR
     Indication: Gestational diabetes
     Dosage: UNK
     Route: 065

REACTIONS (4)
  - Abortion [Unknown]
  - Diabetic ketoacidosis [Unknown]
  - Product quality issue [Unknown]
  - Maternal exposure during pregnancy [Recovered/Resolved]
